FAERS Safety Report 5714570-4 (Version None)
Quarter: 2008Q2

REPORT INFORMATION
  Report Type: 
  Country: None (occurrence: None)
  Receive Date: 20080423
  Receipt Date: 20080417
  Transmission Date: 20081010
  Serious: Yes (Other)
  Sender: FDA-Public Use
  Company Number: US-WYE-H03672008

PATIENT
  Sex: Male
  Weight: 98.93 kg

DRUGS (7)
  1. TYGACIL [Suspect]
     Indication: LOCALISED INFECTION
     Dosage: 100MG INITIALLY, THEN 50 MG Q12H
     Route: 042
     Dates: start: 20080415
  2. ZOFRAN [Concomitant]
     Indication: NAUSEA
     Dosage: UNKNOWN
     Route: 065
     Dates: start: 20080415, end: 20080416
  3. PROTONIX [Concomitant]
     Indication: GASTROOESOPHAGEAL REFLUX DISEASE
     Dosage: UNKNOWN
     Route: 065
     Dates: start: 20080415
  4. ACETYLSALICYLIC ACID SRT [Concomitant]
     Indication: PROPHYLAXIS
     Dosage: UNKNOWN
     Route: 065
     Dates: start: 20080415
  5. PREVACID [Concomitant]
     Indication: GASTROOESOPHAGEAL REFLUX DISEASE
  6. TOPROL-XL [Concomitant]
     Indication: HYPERTENSION
     Dosage: UNKNOWN
     Route: 065
     Dates: start: 20080414
  7. ATIVAN [Concomitant]
     Indication: ANXIETY
     Dosage: UNKNOWN
     Route: 065
     Dates: start: 20080416

REACTIONS (1)
  - CHEST PAIN [None]
